FAERS Safety Report 23459063 (Version 1)
Quarter: 2024Q1

REPORT INFORMATION
  Report Type: Spontaneous
  Country: US (occurrence: US)
  Receive Date: 20240131
  Receipt Date: 20240131
  Transmission Date: 20240409
  Serious: Yes (Other)
  Sender: FDA-Public Use
  Company Number: US-KOANAAP-SML-US-2024-00058

PATIENT
  Age: 44 Year
  Sex: Female

DRUGS (4)
  1. GEMCITABINE [Suspect]
     Active Substance: GEMCITABINE
     Indication: Uterine leiomyosarcoma
     Route: 065
  2. DOCETAXEL [Suspect]
     Active Substance: DOCETAXEL\DOCETAXEL ANHYDROUS
     Indication: Uterine leiomyosarcoma
     Route: 065
  3. DOXORUBICIN [Suspect]
     Active Substance: DOXORUBICIN
     Indication: Uterine leiomyosarcoma
     Dosage: 5 CYCLES
     Route: 065
  4. TRABECTEDIN [Suspect]
     Active Substance: TRABECTEDIN
     Indication: Uterine leiomyosarcoma
     Dosage: 5 CYCLES
     Route: 065

REACTIONS (3)
  - Disease progression [Unknown]
  - Disease recurrence [Unknown]
  - Drug ineffective [Unknown]
